FAERS Safety Report 5353246-2 (Version None)
Quarter: 2007Q2

REPORT INFORMATION
  Report Type: 
  Country: None (occurrence: None)
  Receive Date: 20070608
  Receipt Date: 20070529
  Transmission Date: 20071010
  Serious: Yes (Hospitalization)
  Sender: FDA-Public Use
  Company Number: US020186

PATIENT
  Age: 50 Year
  Sex: Male
  Weight: 115.6672 kg

DRUGS (9)
  1. ACTIQ [Suspect]
     Indication: PAIN
     Dosage: 1200 UG BID BUCCAL
     Route: 002
     Dates: start: 20040101, end: 20061001
  2. ACTIQ [Suspect]
     Indication: PAIN
     Dosage: 200 UG BID BUCCAL
     Route: 002
     Dates: start: 20061001
  3. MS CONTIN [Concomitant]
  4. SKELAXIN [Concomitant]
  5. CELEBREX [Concomitant]
  6. NEURONTIN [Concomitant]
  7. LORAZEPAM [Concomitant]
  8. AMBIEN [Concomitant]
  9. MIRALAX [Concomitant]

REACTIONS (8)
  - AMNESIA [None]
  - CARDIAC ARREST [None]
  - DEEP VEIN THROMBOSIS [None]
  - GINGIVAL PAIN [None]
  - OVERDOSE [None]
  - RESPIRATORY FAILURE [None]
  - TOOTH LOSS [None]
  - WEIGHT DECREASED [None]
